FAERS Safety Report 12687151 (Version 1)
Quarter: 2016Q3

REPORT INFORMATION
  Report Type: Spontaneous
  Country: JP (occurrence: JP)
  Receive Date: 20160826
  Receipt Date: 20160826
  Transmission Date: 20161109
  Serious: Yes (Death, Hospitalization)
  Sender: FDA-Public Use
  Company Number: JP-BRISTOL-MYERS SQUIBB COMPANY-BMS-2016-070256

PATIENT
  Age: 66 Year
  Sex: Male

DRUGS (2)
  1. NIVOLUMAB [Suspect]
     Active Substance: NIVOLUMAB
     Dosage: 240 MG, QD TWICE A MONTH
     Route: 041
     Dates: start: 20160727, end: 20160727
  2. NIVOLUMAB [Suspect]
     Active Substance: NIVOLUMAB
     Indication: NON-SMALL CELL LUNG CANCER
     Dosage: 240 MG, QD TWICE A MONTH
     Route: 041
     Dates: start: 20160629, end: 20160629

REACTIONS (1)
  - Hepatic function abnormal [Fatal]

NARRATIVE: CASE EVENT DATE: 20160810
